FAERS Safety Report 6445643-9 (Version None)
Quarter: 2009Q4

REPORT INFORMATION
  Report Type: 
  Country: None (occurrence: None)
  Receive Date: 20091118
  Receipt Date: 20091118
  Transmission Date: 20100525
  Serious: Yes (Hospitalization)
  Sender: FDA-Public Use
  Company Number: None

PATIENT
  Sex: Female
  Weight: 90.7194 kg

DRUGS (1)
  1. ZETIA [Suspect]
     Dosage: 10 MG TAB M + C ONE A DAY

REACTIONS (4)
  - CHOLELITHIASIS [None]
  - MALAISE [None]
  - PAIN [None]
  - RENAL DISORDER [None]
